FAERS Safety Report 7229294-4 (Version None)
Quarter: 2011Q1

REPORT INFORMATION
  Report Type: 
  Country: None (occurrence: None)
  Receive Date: 20110117
  Receipt Date: 20110103
  Transmission Date: 20110831
  Serious: No
  Sender: FDA-Public Use
  Company Number: US-JNJFOC-20110100815

PATIENT
  Sex: Male
  Weight: 117.94 kg

DRUGS (3)
  1. TEMAZEPAM [Concomitant]
     Indication: SLEEP DISORDER
     Route: 048
  2. LITHIUM CARBONATE [Concomitant]
     Route: 048
  3. INVEGA SUSTENNA [Suspect]
     Indication: SCHIZOAFFECTIVE DISORDER

REACTIONS (1)
  - HYPERSOMNIA [None]
